FAERS Safety Report 6862142-0 (Version None)
Quarter: 2010Q3

REPORT INFORMATION
  Report Type: 
  Country: None (occurrence: None)
  Receive Date: 20100721
  Receipt Date: 20100716
  Transmission Date: 20110219
  Serious: Yes (Other)
  Sender: FDA-Public Use
  Company Number: US-JNJFOC-20091203323

PATIENT
  Sex: Male
  Weight: 73.5 kg

DRUGS (6)
  1. INFLIXIMAB [Suspect]
     Indication: CROHN'S DISEASE
     Route: 042
  2. 5-ASA [Concomitant]
  3. MERCAPTOPURINE [Concomitant]
  4. CALCIUM WITH VITAMIN D [Concomitant]
  5. PROPRANOLOL [Concomitant]
  6. IRON [Concomitant]

REACTIONS (1)
  - CROHN'S DISEASE [None]
